FAERS Safety Report 21947405 (Version 1)
Quarter: 2023Q1

REPORT INFORMATION
  Report Type: Report from Study
  Country: CO (occurrence: CO)
  Receive Date: 20230202
  Receipt Date: 20230202
  Transmission Date: 20230417
  Serious: Yes (Other)
  Sender: FDA-Public Use
  Company Number: CO-ABBVIE-4291496

PATIENT
  Sex: Female
  Weight: 48 kg

DRUGS (3)
  1. HUMIRA [Suspect]
     Active Substance: ADALIMUMAB
     Indication: Psoriatic arthropathy
     Route: 058
     Dates: end: 20221217
  2. HUMIRA [Suspect]
     Active Substance: ADALIMUMAB
  3. BETAMETHASONE [Concomitant]
     Active Substance: BETAMETHASONE
     Indication: Psoriatic arthropathy
     Dosage: START DATE: BEFORE HUMIRA?AT NIGHT
     Route: 061

REACTIONS (8)
  - Varicose vein [Recovering/Resolving]
  - Gait disturbance [Recovering/Resolving]
  - Skin hyperpigmentation [Not Recovered/Not Resolved]
  - Dry skin [Not Recovered/Not Resolved]
  - Skin plaque [Recovering/Resolving]
  - Procedural pain [Recovering/Resolving]
  - Thrombosis [Not Recovered/Not Resolved]
  - Erythema [Unknown]

NARRATIVE: CASE EVENT DATE: 20220101
